FAERS Safety Report 5620161-6 (Version None)
Quarter: 2008Q1

REPORT INFORMATION
  Report Type: 
  Country: None (occurrence: None)
  Receive Date: 20080208
  Receipt Date: 20080130
  Transmission Date: 20080703
  Serious: Yes (Other)
  Sender: FDA-Public Use
  Company Number: FR-SANOFI-SYNTHELABO-A01200801207

PATIENT
  Age: 90 Year
  Sex: Female

DRUGS (1)
  1. PLAVIX [Suspect]
     Indication: ARTERITIS
     Dosage: UNK
     Route: 048
     Dates: end: 20080130

REACTIONS (1)
  - CARDIAC FAILURE [None]
